FAERS Safety Report 10224727 (Version 1)
Quarter: 2014Q2

REPORT INFORMATION
  Report Type: Spontaneous
  Country: BD (occurrence: BD)
  Receive Date: 20140609
  Receipt Date: 20140609
  Transmission Date: 20141212
  Serious: Yes (Hospitalization)
  Sender: FDA-Public Use
  Company Number: BD-MYLANLABS-2014S1012934

PATIENT
  Age: 30 Year
  Sex: Female

DRUGS (2)
  1. PREDNISOLONE [Suspect]
     Indication: WEIGHT INCREASED
     Route: 048
  2. PREDNISOLONE [Suspect]
     Indication: OFF LABEL USE
     Route: 048

REACTIONS (1)
  - Osteonecrosis [Recovering/Resolving]
